FAERS Safety Report 15319067 (Version 3)
Quarter: 2019Q1

REPORT INFORMATION
  Report Type: Spontaneous
  Country: US (occurrence: US)
  Receive Date: 20180826
  Receipt Date: 20190225
  Transmission Date: 20190417
  Serious: Yes (Hospitalization, Other)
  Sender: FDA-Public Use
  Company Number: US-PRINSTON PHARMACEUTICAL INC.-2018PRN00918

PATIENT
  Age: 59 Year
  Sex: Female
  Weight: 76.19 kg

DRUGS (11)
  1. VALSARTAN AND HYDROCHLOROTHIAZIDE [Suspect]
     Active Substance: HYDROCHLOROTHIAZIDE\VALSARTAN
     Dosage: 160/12.5 MG ONCE DAILY
     Dates: start: 2003
  2. PAXIL CR [Concomitant]
     Active Substance: PAROXETINE HYDROCHLORIDE
     Dosage: 12.5 MG, 1X/DAY
  3. VITAMIN B12 [Concomitant]
     Active Substance: CYANOCOBALAMIN
  4. PROAIR HFA [Concomitant]
     Active Substance: ALBUTEROL SULFATE
     Dosage: 90 ?G
  5. DILTIAZEM ER [Concomitant]
     Active Substance: DILTIAZEM
     Dosage: 60 MG, 2X/DAY
  6. UNSPECIFIED MEDICATION FOR STOMACH ACID [Concomitant]
     Dosage: UNK, AS NEEDED
  7. ASPIRIN. [Concomitant]
     Active Substance: ASPIRIN
     Dosage: 81 MG, 1X/DAY
  8. DIOVAN [Concomitant]
     Active Substance: VALSARTAN
     Dosage: 80 MG, 1X/DAY
  9. QVAR [Concomitant]
     Active Substance: BECLOMETHASONE DIPROPIONATE
     Dosage: 80 ?G, 2X/DAY
  10. VITAMIN D [Concomitant]
     Active Substance: CHOLECALCIFEROL
  11. VALSARTAN AND HYDROCHLOROTHIAZIDE [Suspect]
     Active Substance: HYDROCHLOROTHIAZIDE\VALSARTAN
     Indication: HYPERTENSION
     Dosage: 80/12.5 MG ONCE DAILY
     Route: 048
     Dates: start: 20121211, end: 2018

REACTIONS (3)
  - Lipoma [Not Recovered/Not Resolved]
  - Malignant connective tissue neoplasm [Not Recovered/Not Resolved]
  - Liposarcoma [Not Recovered/Not Resolved]

NARRATIVE: CASE EVENT DATE: 2017
